FAERS Safety Report 14700094 (Version 1)
Quarter: 2018Q1

REPORT INFORMATION
  Report Type: Spontaneous
  Country: AU (occurrence: AU)
  Receive Date: 20180330
  Receipt Date: 20180330
  Transmission Date: 20180509
  Serious: Yes (Death, Other)
  Sender: FDA-Public Use
  Company Number: AU-GLAXOSMITHKLINE-AU2018GSK050297

PATIENT
  Sex: Female

DRUGS (9)
  1. SALBUTAMOL SULPHATE [Suspect]
     Active Substance: ALBUTEROL SULFATE
     Indication: PRODUCT USED FOR UNKNOWN INDICATION
     Dosage: UNK
     Route: 065
  2. PREDNISONE. [Concomitant]
     Active Substance: PREDNISONE
     Indication: DRUG REACTION WITH EOSINOPHILIA AND SYSTEMIC SYMPTOMS
     Dosage: UNK
     Route: 065
  3. PROMETHAZINE [Concomitant]
     Active Substance: PROMETHAZINE\PROMETHAZINE HYDROCHLORIDE
     Indication: DRUG REACTION WITH EOSINOPHILIA AND SYSTEMIC SYMPTOMS
     Dosage: UNK
     Route: 065
  4. LORATADINE. [Suspect]
     Active Substance: LORATADINE
     Indication: DRUG REACTION WITH EOSINOPHILIA AND SYSTEMIC SYMPTOMS
     Dosage: 10 DF, UNK
     Route: 065
  5. PRAZOSIN. [Concomitant]
     Active Substance: PRAZOSIN
     Indication: HYPERTENSION
     Dosage: UNK
     Route: 065
  6. VITAMIN D [Concomitant]
     Active Substance: CHOLECALCIFEROL
     Indication: PRODUCT USED FOR UNKNOWN INDICATION
     Dosage: UNK
     Route: 065
  7. MEPOLIZUMAB [Suspect]
     Active Substance: MEPOLIZUMAB
     Indication: DRUG REACTION WITH EOSINOPHILIA AND SYSTEMIC SYMPTOMS
     Dosage: 100 DF, UNK
     Route: 058
  8. MUPIROCIN. [Concomitant]
     Active Substance: MUPIROCIN
     Indication: DRUG REACTION WITH EOSINOPHILIA AND SYSTEMIC SYMPTOMS
     Dosage: UNK
     Route: 065
  9. ASCORBIC ACID/FERROUS SULFATE [Concomitant]
     Indication: PRODUCT USED FOR UNKNOWN INDICATION
     Dosage: UNK
     Route: 065

REACTIONS (13)
  - Cardiac arrest [Fatal]
  - Abdominal discomfort [Unknown]
  - Off label use [Unknown]
  - Cardiovascular symptom [Unknown]
  - Dyspnoea [Recovering/Resolving]
  - Platelet count decreased [Unknown]
  - Product use in unapproved indication [Unknown]
  - Productive cough [Unknown]
  - C-reactive protein increased [Unknown]
  - Cough [Not Recovered/Not Resolved]
  - Bronchial hyperreactivity [Unknown]
  - Abdominal distension [Unknown]
  - Wheezing [Unknown]
